FAERS Safety Report 9415149 (Version 1)
Quarter: 2013Q3

REPORT INFORMATION
  Report Type: Spontaneous
  Country: IT (occurrence: IT)
  Receive Date: 20130723
  Receipt Date: 20130723
  Transmission Date: 20140515
  Serious: Yes (Death, Other)
  Sender: FDA-Public Use
  Company Number: IT-SPECTRUM PHARMACEUTICALS, INC.-13-F-US-00204

PATIENT
  Sex: 0

DRUGS (4)
  1. FLUOROURACIL [Suspect]
     Indication: NEOPLASM MALIGNANT
     Dosage: UNK
     Route: 042
  2. LEUCOVORIN /00566701/ [Suspect]
     Indication: NEOPLASM MALIGNANT
     Dosage: UNK
     Route: 065
  3. OXALIPLATIN [Suspect]
     Indication: NEOPLASM MALIGNANT
     Dosage: UNK
     Route: 065
  4. CAPECITABINE [Suspect]
     Indication: NEOPLASM MALIGNANT
     Dosage: UNK
     Route: 065

REACTIONS (9)
  - Death [Fatal]
  - Mucosal inflammation [Unknown]
  - Diarrhoea [Unknown]
  - Thrombocytopenia [Unknown]
  - Anaemia [Unknown]
  - Febrile neutropenia [Unknown]
  - Palmar-plantar erythrodysaesthesia syndrome [Unknown]
  - Dermatitis [Unknown]
  - Alopecia [Unknown]
